FAERS Safety Report 25191189 (Version 4)
Quarter: 2025Q2

REPORT INFORMATION
  Report Type: Spontaneous
  Country: US (occurrence: US)
  Receive Date: 20250411
  Receipt Date: 20250625
  Transmission Date: 20250717
  Serious: No
  Sender: NOVARTIS
  Company Number: US-002147023-NVSC2025US057967

PATIENT
  Age: 65 Year
  Sex: Female
  Weight: 63 kg

DRUGS (2)
  1. LEQVIO [Suspect]
     Active Substance: INCLISIRAN SODIUM
     Indication: Hyperlipidaemia
     Dosage: 284 MG, QD (ONLY ONE INJECTION GIVEN)
     Route: 058
     Dates: start: 20250324, end: 20250324
  2. LEQVIO [Suspect]
     Active Substance: INCLISIRAN SODIUM
     Indication: Low density lipoprotein increased

REACTIONS (5)
  - Rash [Recovering/Resolving]
  - Erythema [Recovering/Resolving]
  - Pruritus [Recovering/Resolving]
  - Blister [Recovering/Resolving]
  - Pseudofolliculitis [Unknown]

NARRATIVE: CASE EVENT DATE: 20250330
